FAERS Safety Report 6575274-1 (Version None)
Quarter: 2010Q1

REPORT INFORMATION
  Report Type: 
  Country: None (occurrence: None)
  Receive Date: 20100209
  Receipt Date: 20100205
  Transmission Date: 20100710
  Serious: Yes (Death)
  Sender: FDA-Public Use
  Company Number: IT-ROCHE-664963

PATIENT
  Sex: Female
  Weight: 58 kg

DRUGS (7)
  1. TOCILIZUMAB [Suspect]
     Indication: RHEUMATOID ARTHRITIS
     Dosage: FORM: VIALS, LAST DOSE PRIOR TO SAE: 15 SEP 2009
     Route: 042
     Dates: start: 20090915
  2. LEFLUNOMIDE [Suspect]
     Indication: RHEUMATOID ARTHRITIS
     Dosage: TDD: 20 MG
     Route: 048
     Dates: start: 20090101
  3. DELTACORTENE [Concomitant]
     Route: 048
  4. NIMESULIDE [Concomitant]
     Dosage: AS NEEDED
     Route: 048
     Dates: start: 20090920
  5. RABEPRAZOLE SODIUM [Concomitant]
     Route: 048
  6. SERETIDE [Concomitant]
     Dosage: AS NEEDED
     Route: 048
  7. TONACAL D3 [Concomitant]
     Dosage: OR 600 MG
     Route: 048
     Dates: start: 20090920

REACTIONS (1)
  - SUDDEN DEATH [None]
